FAERS Safety Report 4972413-0 (Version None)
Quarter: 2006Q1

REPORT INFORMATION
  Report Type: 
  Country: None (occurrence: None)
  Receive Date: 20060216
  Receipt Date: 20051215
  Transmission Date: 20060701
  Serious: No
  Sender: FDA-Public Use
  Company Number: TPA2005A01683

PATIENT
  Age: 48 Year
  Sex: Male
  Weight: 77.1115 kg

DRUGS (3)
  1. ROZEREM [Suspect]
     Indication: SLEEP DISORDER
     Dosage: 1 IN 1 D, PER ORAL
     Route: 048
     Dates: start: 20051027
  2. LIBRIUM [Concomitant]
  3. MELATONIN (MELATONIN) [Concomitant]

REACTIONS (3)
  - CHILLS [None]
  - DRUG INEFFECTIVE [None]
  - SOMNOLENCE [None]
